FAERS Safety Report 19159991 (Version 1)
Quarter: 2021Q2

REPORT INFORMATION
  Report Type: Report from Study
  Country: None (occurrence: US)
  Receive Date: 20210421
  Receipt Date: 20210421
  Transmission Date: 20210717
  Serious: Yes (Other)
  Sender: FDA-Public Use
  Company Number: US-ABBVIE-21K-163-3860733-00

PATIENT
  Age: 63 Year
  Sex: Male
  Weight: 115.77 kg

DRUGS (4)
  1. HUMIRA [Suspect]
     Active Substance: ADALIMUMAB
     Indication: PSORIASIS
     Route: 058
     Dates: start: 201910
  2. ONE?A?DAY NOS [Concomitant]
     Active Substance: MINERALS\VITAMINS
     Indication: VITAMIN SUPPLEMENTATION
  3. VALSARTAN?HYDROCHLORTHIAZIDE [Concomitant]
     Active Substance: HYDROCHLOROTHIAZIDE\VALSARTAN
     Indication: BLOOD PRESSURE MEASUREMENT
  4. HUMIRA [Suspect]
     Active Substance: ADALIMUMAB
     Indication: PSORIATIC ARTHROPATHY

REACTIONS (3)
  - Swelling [Recovering/Resolving]
  - Myalgia [Recovered/Resolved]
  - Rotator cuff syndrome [Not Recovered/Not Resolved]

NARRATIVE: CASE EVENT DATE: 2021
